FAERS Safety Report 15415773 (Version 2)
Quarter: 2025Q3

REPORT INFORMATION
  Report Type: Spontaneous
  Country: US (occurrence: US)
  Receive Date: 20180922
  Receipt Date: 20250705
  Transmission Date: 20251021
  Serious: Yes (Other)
  Sender: JOHNSON AND JOHNSON
  Company Number: US-JNJFOC-20180912306

PATIENT
  Age: 13 Year
  Sex: Male

DRUGS (12)
  1. RISPERIDONE [Suspect]
     Active Substance: RISPERIDONE
     Indication: Product used for unknown indication
     Route: 048
     Dates: start: 20120908, end: 20170413
  2. RISPERIDONE [Suspect]
     Active Substance: RISPERIDONE
  3. RISPERIDONE [Suspect]
     Active Substance: RISPERIDONE
  4. RISPERIDONE [Suspect]
     Active Substance: RISPERIDONE
  5. RISPERIDONE [Suspect]
     Active Substance: RISPERIDONE
  6. RISPERIDONE [Suspect]
     Active Substance: RISPERIDONE
  7. RISPERDAL [Suspect]
     Active Substance: RISPERIDONE
     Indication: Schizophrenia
     Dosage: VARYING DOSES OF 0.25 MG AND 1 MG
     Route: 065
     Dates: end: 201306
  8. RISPERDAL [Suspect]
     Active Substance: RISPERIDONE
     Indication: Affective disorder
  9. RISPERDAL [Suspect]
     Active Substance: RISPERIDONE
  10. RISPERDAL [Suspect]
     Active Substance: RISPERIDONE
  11. RISPERDAL [Suspect]
     Active Substance: RISPERIDONE
  12. RISPERDAL [Suspect]
     Active Substance: RISPERIDONE

REACTIONS (2)
  - Gynaecomastia [Unknown]
  - Emotional disorder [Unknown]
